FAERS Safety Report 8983753 (Version 1)
Quarter: 2012Q4

REPORT INFORMATION
  Report Type: 
  Country: BR (occurrence: BR)
  Receive Date: 20121224
  Receipt Date: 20121224
  Transmission Date: 20130627
  Serious: Yes (Other)
  Sender: FDA-Public Use
  Company Number: BR-BRISTOL-MYERS SQUIBB COMPANY-17223876

PATIENT
  Age: 35 Year
  Sex: Male

DRUGS (2)
  1. SPRYCEL (CML) TABS 50 MG [Suspect]
     Indication: CHRONIC MYELOID LEUKAEMIA
     Route: 048
  2. LOSARTAN [Concomitant]

REACTIONS (2)
  - Mental disorder [Unknown]
  - Tremor [Unknown]
